FAERS Safety Report 9464358 (Version 1)
Quarter: 2013Q3

REPORT INFORMATION
  Report Type: Spontaneous
  Country: NL (occurrence: NL)
  Receive Date: 20130819
  Receipt Date: 20130819
  Transmission Date: 20140515
  Serious: Yes (Congenital Anomaly)
  Sender: FDA-Public Use
  Company Number: NL-PFIZER INC-2013238272

PATIENT
  Age: 7 Day
  Sex: Female
  Weight: 2.85 kg

DRUGS (3)
  1. VENLAFAXINE HCL [Suspect]
     Indication: BORDERLINE PERSONALITY DISORDER
     Dosage: 150 MG, UNK
     Route: 064
  2. FOLIC ACID [Concomitant]
     Dosage: 0.5 MG, UNK
     Route: 064
  3. VENTOLIN ROTACAPS [Concomitant]
     Dosage: 200 UG, 1X/DAY
     Route: 064

REACTIONS (3)
  - Maternal exposure during pregnancy [Unknown]
  - Fallot^s tetralogy [Unknown]
  - Decreased appetite [Unknown]
